FAERS Safety Report 7786158-5 (Version None)
Quarter: 2011Q3

REPORT INFORMATION
  Report Type: 
  Country: None (occurrence: None)
  Receive Date: 20110929
  Receipt Date: 20110920
  Transmission Date: 20111222
  Serious: Yes (Hospitalization)
  Sender: FDA-Public Use
  Company Number: US-BAYER-2011-089725

PATIENT
  Age: 79 Year
  Sex: Female
  Weight: 55.29 kg

DRUGS (32)
  1. MDX-010 [Suspect]
     Dosage: 10 MG/KG, ONCE
     Route: 042
     Dates: start: 20110721, end: 20110721
  2. TRIAMTERENE [Concomitant]
     Indication: MENIERE'S DISEASE
     Dosage: 37.5 MG, QD
     Dates: start: 20090101
  3. DIAZEPAM [Concomitant]
     Indication: MENIERE'S DISEASE
     Dosage: 5 MG, TID PRN
  4. ZINC [Concomitant]
     Dosage: 25 MG, QD
  5. CALCIUM CARBONATE [Concomitant]
     Dosage: 1200 MG, QD
  6. SODIUM PHOSPHATES [Concomitant]
  7. LEVOTHYROXINE [Concomitant]
     Dosage: 0.025 MG, UNK
  8. VITAMIN E [Concomitant]
     Dosage: UNK UNK, QD
  9. ZOLOFT [Concomitant]
  10. SARGRAMOSTIM [Suspect]
     Indication: MALIGNANT MELANOMA
     Dosage: 250 ?G, QD
     Route: 058
     Dates: start: 20110630, end: 20110914
  11. SARGRAMOSTIM [Suspect]
     Dosage: 250 ?G, QD
     Route: 058
     Dates: start: 20110630, end: 20110713
  12. PREDNISONE [Concomitant]
     Indication: PRURITUS
  13. SERTRALINE HYDROCHLORIDE [Concomitant]
     Indication: ANXIETY
     Dosage: 50 MG, QD
     Route: 048
     Dates: start: 20090101
  14. FIBER [Concomitant]
     Dosage: UNK UNK, BID
  15. CRANBERRY [Concomitant]
     Dosage: 2000 1XDAILY
  16. ZOLOFT [Concomitant]
  17. SARGRAMOSTIM [Suspect]
     Dosage: 250 ?G, QD
     Route: 058
     Dates: start: 20110721, end: 20110803
  18. MDX-010 [Suspect]
     Indication: MALIGNANT MELANOMA
     Dosage: 10 MG/KG, ONCE
     Route: 042
     Dates: start: 20110630, end: 20110901
  19. MDX-010 [Suspect]
     Dosage: 10 MG/KG, ONCE
     Route: 042
     Dates: start: 20110811, end: 20110811
  20. VITAMIN B-12 [Concomitant]
     Dosage: 2500 ?G, UNK
  21. VITAMIN D [Concomitant]
     Dosage: 1000 QD
  22. MDX-010 [Suspect]
     Dosage: 10 MG/KG, ONCE
     Route: 042
     Dates: start: 20110630, end: 20110630
  23. PREDNISONE [Concomitant]
     Indication: RASH
  24. FEXOFENADINE [Concomitant]
     Indication: MENIERE'S DISEASE
     Dosage: 180 MG, QD
     Route: 048
     Dates: start: 20090101
  25. MULTI-VITAMIN [Concomitant]
     Dosage: UNK UNK, QD
  26. VITAMIN A [Concomitant]
     Dosage: 3 MG, QD
  27. ZYRTEC [Concomitant]
  28. HYDROCHLOROTHIAZIDE [Concomitant]
     Dosage: 25 MG, QD
  29. KLOR-CON [Concomitant]
     Dosage: 20 MEQ, QD
  30. SARGRAMOSTIM [Suspect]
     Dosage: 250 ?G, QD
     Route: 058
     Dates: start: 20110811, end: 20110824
  31. SIMVASTATIN [Concomitant]
     Indication: HYPERCHOLESTEROLAEMIA
     Dosage: 40 MG, UNK
     Dates: start: 20000101
  32. PERCOCET [Concomitant]
     Dosage: 5 - 325 MG
     Dates: start: 20000101

REACTIONS (4)
  - DEHYDRATION [None]
  - HYPONATRAEMIA [None]
  - PYREXIA [None]
  - FALL [None]
